FAERS Safety Report 5052005-8 (Version None)
Quarter: 2006Q3

REPORT INFORMATION
  Report Type: 
  Country: None (occurrence: None)
  Receive Date: 20060711
  Receipt Date: 20060620
  Transmission Date: 20061208
  Serious: Yes (Other)
  Sender: FDA-Public Use
  Company Number: US200606004641

PATIENT
  Age: 44 Year
  Sex: Female

DRUGS (4)
  1. CYMBALTA [Suspect]
     Dosage: SEE IMAGE
     Dates: start: 20060101
  2. CYMBALTA [Suspect]
     Dosage: SEE IMAGE
     Dates: start: 20060525
  3. CYMBALTA [Suspect]
  4. HORMONES AND RELATED AGENTS [Concomitant]

REACTIONS (6)
  - CONSTIPATION [None]
  - DIABETES MELLITUS [None]
  - DRUG DOSE OMISSION [None]
  - IRRITABILITY [None]
  - NAUSEA [None]
  - NIGHT SWEATS [None]
